FAERS Safety Report 19231149 (Version 2)
Quarter: 2021Q4

REPORT INFORMATION
  Report Type: Spontaneous
  Country: NL (occurrence: NL)
  Receive Date: 20210507
  Receipt Date: 20211112
  Transmission Date: 20220303
  Serious: Yes (Hospitalization)
  Sender: FDA-Public Use
  Company Number: NL-CELGENE-NLD-20210401598

PATIENT
  Age: 37 Year
  Sex: Male

DRUGS (12)
  1. LENALIDOMIDE [Suspect]
     Active Substance: LENALIDOMIDE
     Indication: Plasma cell myeloma
     Route: 048
     Dates: start: 20210326, end: 20210402
  2. DEXAMETHASONE [Suspect]
     Active Substance: DEXAMETHASONE
     Indication: Plasma cell myeloma
     Route: 065
     Dates: start: 20210326, end: 20210402
  3. CARFILZOMIB [Suspect]
     Active Substance: CARFILZOMIB
     Indication: Plasma cell myeloma
     Route: 065
     Dates: start: 20210326, end: 20210402
  4. OMEPRAZOLE [Concomitant]
     Active Substance: OMEPRAZOLE
     Indication: Prophylaxis
     Route: 065
     Dates: start: 20210308
  5. CIPROFLOXACIN [Concomitant]
     Active Substance: CIPROFLOXACIN
     Indication: Prophylaxis
     Route: 065
     Dates: start: 20210326
  6. CARBASPIRIN CALCIUM [Concomitant]
     Active Substance: CARBASPIRIN CALCIUM
     Indication: Product used for unknown indication
     Route: 065
     Dates: start: 20210326
  7. FLUCONAZOLE [Concomitant]
     Active Substance: FLUCONAZOLE
     Indication: Prophylaxis
     Route: 065
     Dates: start: 20210326
  8. RASBURICASE [Concomitant]
     Active Substance: RASBURICASE
     Indication: Prophylaxis
     Route: 065
     Dates: start: 20210326, end: 20210326
  9. VALACYCLOVIR HYDROCHLORIDE [Concomitant]
     Active Substance: VALACYCLOVIR HYDROCHLORIDE
     Indication: Prophylaxis
     Route: 065
     Dates: start: 20210326
  10. OXYCODONE [Concomitant]
     Active Substance: OXYCODONE
     Indication: Prophylaxis
     Route: 065
     Dates: start: 20210308
  11. ALLOPURINOL [Concomitant]
     Active Substance: ALLOPURINOL
     Indication: Prophylaxis
     Route: 065
     Dates: start: 20210326
  12. LOPERAMIDE [Concomitant]
     Active Substance: LOPERAMIDE
     Indication: Diarrhoea
     Route: 065
     Dates: start: 20210629, end: 20210630

REACTIONS (1)
  - Infusion related reaction [Recovered/Resolved]

NARRATIVE: CASE EVENT DATE: 20210402
